FAERS Safety Report 21957158 (Version 1)
Quarter: 2023Q1

REPORT INFORMATION
  Report Type: Report from Study
  Country: US (occurrence: US)
  Receive Date: 20230206
  Receipt Date: 20230206
  Transmission Date: 20230418
  Serious: Yes (Hospitalization, Other)
  Sender: FDA-Public Use
  Company Number: US-MYLANLABS-2023M1011750

PATIENT
  Age: 68 Year
  Sex: Female
  Weight: 78.5 kg

DRUGS (30)
  1. XANAX [Interacting]
     Active Substance: ALPRAZOLAM
     Indication: Insomnia
     Dosage: UNK
     Route: 065
  2. KORLYM [Interacting]
     Active Substance: MIFEPRISTONE
     Indication: Cushing^s syndrome
     Dosage: 300 MILLIGRAM, QOD
     Route: 048
     Dates: start: 20220708, end: 20220831
  3. KORLYM [Interacting]
     Active Substance: MIFEPRISTONE
     Dosage: 300 MILLIGRAM, QD, STOP DATE: 2022
     Route: 048
     Dates: start: 20220901
  4. KORLYM [Interacting]
     Active Substance: MIFEPRISTONE
     Dosage: 600 MILLIGRAM, QD, STOP DATE: 2022
     Route: 048
     Dates: start: 20220908
  5. KORLYM [Interacting]
     Active Substance: MIFEPRISTONE
     Dosage: 300 MILLIGRAM, QOD,
     Route: 048
     Dates: start: 2022
  6. ATIVAN [Suspect]
     Active Substance: LORAZEPAM
     Indication: Insomnia
     Dosage: 4-5 MG,HS (AT BEDTIME), START DATE: 23-JAN-2023
     Route: 065
  7. ADDERALL [Concomitant]
     Active Substance: AMPHETAMINE ASPARTATE\AMPHETAMINE SULFATE\DEXTROAMPHETAMINE SACCHARATE\DEXTROAMPHETAMINE SULFATE
     Dosage: UNK
     Route: 065
  8. ALPRAZOLAM [Concomitant]
     Active Substance: ALPRAZOLAM
     Dosage: UNK
     Route: 065
  9. AMITRIPTYLINE [Concomitant]
     Active Substance: AMITRIPTYLINE
     Dosage: UNK
     Route: 065
  10. CANNABIDIOL\HERBALS [Concomitant]
     Active Substance: CANNABIDIOL\HERBALS
     Dosage: UNK
     Route: 065
  11. CINNAMON [Concomitant]
     Active Substance: CINNAMON
     Dosage: UNK
     Route: 065
  12. Elderberry black flowers [Concomitant]
     Dosage: UNK
     Route: 065
  13. ETODOLAC [Concomitant]
     Active Substance: ETODOLAC
     Dosage: UNK
     Route: 065
  14. GABAPENTIN [Concomitant]
     Active Substance: GABAPENTIN
     Dosage: UNK
     Route: 065
  15. JARDIANCE [Concomitant]
     Active Substance: EMPAGLIFLOZIN
     Dosage: UNK
     Route: 065
  16. LEXAPRO [Concomitant]
     Active Substance: ESCITALOPRAM OXALATE
     Dosage: UNK
     Route: 065
  17. MAGNESIUM [Concomitant]
     Active Substance: MAGNESIUM
     Dosage: UNK
     Route: 065
  18. HERBALS\PLANTAGO OVATA SEED\PLANTAGO SEED [Concomitant]
     Active Substance: HERBALS\PLANTAGO OVATA SEED\PLANTAGO SEED
     Dosage: UNK
     Route: 065
  19. Omega-3 + -6 Complex [Concomitant]
     Dosage: UNK
     Route: 065
  20. RYBELSUS [Concomitant]
     Active Substance: SEMAGLUTIDE
     Dosage: UNK
     Route: 065
  21. BIOTIN [Concomitant]
     Active Substance: BIOTIN
     Dosage: UNK
     Route: 065
  22. VITAMIN B COMPLEX NOS [Concomitant]
     Active Substance: CYANOCOBALAMIN\PYRIDOXINE HYDROCHLORIDE\RIBOFLAVIN\SODIUM PANTOTHENATE\THIAMINE HYDROCHLORIDE\VITAMI
     Dosage: UNK
     Route: 065
  23. HYDROCHLOROTHIAZIDE\VALSARTAN [Concomitant]
     Active Substance: HYDROCHLOROTHIAZIDE\VALSARTAN
     Dosage: UNK
     Route: 065
  24. ASCORBIC ACID [Concomitant]
     Active Substance: ASCORBIC ACID
     Dosage: UNK
     Route: 065
  25. VITAMIN D3 [Concomitant]
     Active Substance: CHOLECALCIFEROL
     Dosage: UNK
     Route: 065
  26. ZINC [Concomitant]
     Active Substance: ZINC
     Dosage: UNK
     Route: 065
  27. ZYPREXA [Concomitant]
     Active Substance: OLANZAPINE
     Dosage: UNK
     Route: 065
  28. COENZYME Q10 [Concomitant]
     Active Substance: DIETARY SUPPLEMENT\UBIDECARENONE
     Dosage: UNK
     Route: 065
  29. KRILL OIL [Concomitant]
     Active Substance: DIETARY SUPPLEMENT\KRILL OIL
     Dosage: UNK
     Route: 065
  30. OLANZAPINE [Concomitant]
     Active Substance: OLANZAPINE
     Dosage: UNK
     Route: 065

REACTIONS (8)
  - Pneumonia viral [Recovered/Resolved]
  - Septic shock [Recovered/Resolved]
  - Blood potassium decreased [Recovering/Resolving]
  - Drug interaction [Unknown]
  - Skin wrinkling [Unknown]
  - Muscle spasms [Recovered/Resolved]
  - Insomnia [Recovered/Resolved]
  - Off label use [Unknown]

NARRATIVE: CASE EVENT DATE: 20221001
